FAERS Safety Report 9633773 (Version 2)
Quarter: 2013Q4

REPORT INFORMATION
  Report Type: Spontaneous
  Country: RU (occurrence: RU)
  Receive Date: 20131021
  Receipt Date: 20131107
  Transmission Date: 20140711
  Serious: Yes (Other)
  Sender: FDA-Public Use
  Company Number: RU-JNJFOC-20131010899

PATIENT
  Age: 32 Year
  Sex: Male

DRUGS (4)
  1. SIMPONI [Suspect]
     Indication: ANKYLOSING SPONDYLITIS
     Route: 058
     Dates: start: 20130410, end: 20130810
  2. SANDIMMUN NEORAL [Concomitant]
     Route: 065
     Dates: start: 201212
  3. MELOXICAM [Concomitant]
     Route: 065
     Dates: start: 201212
  4. MYDOCALM (FORMULATION UNKNOWN) [Concomitant]
     Route: 065
     Dates: start: 201212

REACTIONS (1)
  - Pulmonary tuberculosis [Not Recovered/Not Resolved]
